FAERS Safety Report 7404134-9 (Version None)
Quarter: 2011Q1

REPORT INFORMATION
  Report Type: 
  Country: None (occurrence: None)
  Receive Date: 20110322
  Receipt Date: 20110307
  Transmission Date: 20110831
  Serious: Yes (Hospitalization, Other)
  Sender: FDA-Public Use
  Company Number: 2011PROUSA00243

PATIENT
  Age: 86 Year
  Sex: Male
  Weight: 93 kg

DRUGS (2)
  1. PROVENGE [Suspect]
     Indication: PROSTATE CANCER METASTATIC
     Dosage: 250 ML, SINGLLE, INTRAVENOUS
     Route: 042
     Dates: start: 20110224, end: 20110224
  2. LIDOCAINE (LIDOCAINE HYDROCHLORIDE) [Concomitant]

REACTIONS (5)
  - ABASIA [None]
  - MUSCULAR WEAKNESS [None]
  - MALAISE [None]
  - HYPOAESTHESIA [None]
  - NEUROPATHY PERIPHERAL [None]
